FAERS Safety Report 9155191 (Version 1)
Quarter: 2013Q1

REPORT INFORMATION
  Report Type: Spontaneous
  Country: US (occurrence: US)
  Receive Date: 20130311
  Receipt Date: 20130311
  Transmission Date: 20140127
  Serious: Yes (Other)
  Sender: FDA-Public Use
  Company Number: US-PFIZER INC-2013080813

PATIENT
  Age: 87 Year
  Sex: Male
  Weight: 63.49 kg

DRUGS (1)
  1. VIAGRA [Suspect]
     Indication: ERECTILE DYSFUNCTION
     Dosage: ONE TABLET DAILY
     Route: 048

REACTIONS (2)
  - Sexually inappropriate behaviour [Not Recovered/Not Resolved]
  - Libido increased [Not Recovered/Not Resolved]
